FAERS Safety Report 5277397-6 (Version None)
Quarter: 2007Q1

REPORT INFORMATION
  Report Type: 
  Country: None (occurrence: None)
  Receive Date: 20070327
  Receipt Date: 20070320
  Transmission Date: 20070707
  Serious: Yes (Life-Threatening, Hospitalization, Other)
  Sender: FDA-Public Use
  Company Number: 2007PK00654

PATIENT

DRUGS (8)
  1. IRESSA [Suspect]
     Indication: GLIOBLASTOMA MULTIFORME
     Route: 048
     Dates: start: 20061229, end: 20070216
  2. IRESSA [Suspect]
     Route: 048
     Dates: start: 20070302
  3. KEPPRA [Concomitant]
     Indication: EPILEPSY
     Dates: start: 20050924
  4. METOPROLOL SUCCINATE [Concomitant]
     Indication: ATRIAL FIBRILLATION
     Dates: start: 20060101
  5. FORTECOETIN [Concomitant]
     Indication: OEDEMA
     Dates: start: 20060101
  6. SURMONTIL 4 % [Concomitant]
     Indication: DEPRESSION
     Dates: start: 20060101
  7. MISTEL [Concomitant]
     Indication: GLIOBLASTOMA MULTIFORME
  8. SPIRICORT [Concomitant]
     Indication: OEDEMA
     Dates: start: 20070111

REACTIONS (2)
  - LOBAR PNEUMONIA [None]
  - PNEUMONIA PNEUMOCOCCAL [None]
